FAERS Safety Report 6067362-3 (Version None)
Quarter: 2009Q1

REPORT INFORMATION
  Report Type: 
  Country: None (occurrence: None)
  Receive Date: 20090204
  Receipt Date: 20090204
  Transmission Date: 20090719
  Serious: Yes (Other)
  Sender: FDA-Public Use
  Company Number: None

PATIENT
  Sex: Female
  Weight: 70.3983 kg

DRUGS (4)
  1. EFFEXOR [Suspect]
  2. LEXAPRO [Suspect]
  3. CELEXA [Concomitant]
  4. WELLBUTRIN SR [Concomitant]

REACTIONS (8)
  - ANXIETY [None]
  - DIARRHOEA [None]
  - DRUG INTOLERANCE [None]
  - HYPERHIDROSIS [None]
  - NAUSEA [None]
  - NERVOUSNESS [None]
  - RASH [None]
  - VOMITING [None]
